FAERS Safety Report 10653074 (Version 2)
Quarter: 2014Q4

REPORT INFORMATION
  Report Type: Report from Study
  Country: CA (occurrence: CA)
  Receive Date: 20141215
  Receipt Date: 20141215
  Transmission Date: 20150529
  Serious: Yes (Hospitalization, Other)
  Sender: FDA-Public Use
  Company Number: CA-BRISTOL-MYERS SQUIBB COMPANY-21462122

PATIENT
  Age: 56 Year
  Sex: Female

DRUGS (1)
  1. DASATINIB [Suspect]
     Active Substance: DASATINIB
     Indication: CHRONIC MYELOID LEUKAEMIA
     Dosage: 100 MG, QD
     Route: 048
     Dates: start: 20140516, end: 20141115

REACTIONS (7)
  - Subdural haemorrhage [Unknown]
  - Pyrexia [Unknown]
  - Pruritus [Recovered/Resolved]
  - Surgery [Unknown]
  - Nephrolithiasis [Unknown]
  - Dandruff [Recovered/Resolved]
  - Headache [Unknown]

NARRATIVE: CASE EVENT DATE: 20141015
